FAERS Safety Report 6750785-4 (Version None)
Quarter: 2010Q2

REPORT INFORMATION
  Report Type: 
  Country: None (occurrence: None)
  Receive Date: 20100602
  Receipt Date: 20100517
  Transmission Date: 20101027
  Serious: Yes (Hospitalization, Other)
  Sender: FDA-Public Use
  Company Number: US-SHIRE-SPV1-2010-00974

PATIENT

DRUGS (1)
  1. PENTASA [Suspect]
     Indication: CROHN'S DISEASE
     Dosage: UNK, UNKNOWN
     Route: 065

REACTIONS (9)
  - ANAEMIA [None]
  - ASTHENIA [None]
  - BENIGN COLONIC NEOPLASM [None]
  - CARDIAC FAILURE CONGESTIVE [None]
  - FALL [None]
  - MASS [None]
  - OFF LABEL USE [None]
  - PELVIC NEOPLASM [None]
  - UPPER LIMB FRACTURE [None]
